FAERS Safety Report 6761801-8 (Version None)
Quarter: 2010Q2

REPORT INFORMATION
  Report Type: 
  Country: None (occurrence: None)
  Receive Date: 20100415
  Receipt Date: 20100409
  Transmission Date: 20101027
  Serious: Yes (Death, Hospitalization)
  Sender: FDA-Public Use
  Company Number: 2010022260

PATIENT
  Sex: Male
  Weight: 60.3284 kg

DRUGS (11)
  1. PRIVIGEN [Suspect]
     Indication: RENAL AND PANCREAS TRANSPLANT REJECTION
     Dosage: INTRAVENOUS (NOT SPECIFIED), INTRAVENOUS (NOT SPECIFIED), INTRAVENOUS (NOT SPECIFIED), INTRAVENOUS
     Route: 042
     Dates: start: 20091116, end: 20091116
  2. PRIVIGEN [Suspect]
     Indication: RENAL AND PANCREAS TRANSPLANT REJECTION
     Dosage: INTRAVENOUS (NOT SPECIFIED), INTRAVENOUS (NOT SPECIFIED), INTRAVENOUS (NOT SPECIFIED), INTRAVENOUS
     Route: 042
     Dates: start: 20091118, end: 20091118
  3. PRIVIGEN [Suspect]
     Indication: RENAL AND PANCREAS TRANSPLANT REJECTION
     Dosage: INTRAVENOUS (NOT SPECIFIED), INTRAVENOUS (NOT SPECIFIED), INTRAVENOUS (NOT SPECIFIED), INTRAVENOUS
     Route: 042
     Dates: start: 20091120, end: 20091120
  4. PRIVIGEN [Suspect]
     Indication: RENAL AND PANCREAS TRANSPLANT REJECTION
     Dosage: INTRAVENOUS (NOT SPECIFIED), INTRAVENOUS (NOT SPECIFIED), INTRAVENOUS (NOT SPECIFIED), INTRAVENOUS
     Route: 042
     Dates: start: 20091123, end: 20091123
  5. PRIVIGEN [Suspect]
     Indication: RENAL AND PANCREAS TRANSPLANT REJECTION
     Dosage: INTRAVENOUS (NOT SPECIFIED), INTRAVENOUS (NOT SPECIFIED), INTRAVENOUS (NOT SPECIFIED), INTRAVENOUS
     Route: 042
     Dates: start: 20091125, end: 20091125
  6. PRIVIGEN [Suspect]
     Indication: RENAL AND PANCREAS TRANSPLANT REJECTION
     Dosage: INTRAVENOUS (NOT SPECIFIED), INTRAVENOUS (NOT SPECIFIED), INTRAVENOUS (NOT SPECIFIED), INTRAVENOUS
     Route: 042
     Dates: start: 20091127, end: 20091127
  7. CELLCEPT [Concomitant]
  8. PREDNISONE [Concomitant]
  9. PROGRAF [Concomitant]
  10. BACTRIM [Concomitant]
  11. SIMVASTATIN [Concomitant]

REACTIONS (5)
  - DYSPNOEA [None]
  - INFLUENZA LIKE ILLNESS [None]
  - INFUSION RELATED REACTION [None]
  - KIDNEY TRANSPLANT REJECTION [None]
  - RESPIRATORY FAILURE [None]
